FAERS Safety Report 10792536 (Version 1)
Quarter: 2015Q1

REPORT INFORMATION
  Report Type: Spontaneous
  Country: US (occurrence: None)
  Receive Date: 20150211
  Receipt Date: 20150211
  Transmission Date: 20150721
  Serious: Yes (Life-Threatening)
  Sender: FDA-Public Use
  Company Number: 54973 AE # 1592

PATIENT
  Age: 2 Year
  Sex: Male

DRUGS (2)
  1. HYLAND ^S 4 KIDS COLD N MUCUS LIQUID [Suspect]
     Active Substance: HOMEOPATHICS
     Indication: NASOPHARYNGITIS
     Dosage: 1 DOSE
     Route: 048
  2. HYLAND ^S 4 KIDS COLD N MUCUS LIQUID [Suspect]
     Active Substance: HOMEOPATHICS
     Indication: BODY TEMPERATURE INCREASED
     Dosage: 1 DOSE
     Route: 048

REACTIONS (10)
  - Dyspnoea [None]
  - Respiratory rate increased [None]
  - Swelling face [None]
  - Heart rate increased [None]
  - Hypersensitivity [None]
  - Irritability [None]
  - Erythema [None]
  - Lip swelling [None]
  - Product formulation issue [None]
  - Urticaria [None]

NARRATIVE: CASE EVENT DATE: 20150110
